FAERS Safety Report 4431418-9 (Version None)
Quarter: 2004Q3

REPORT INFORMATION
  Report Type: 
  Country: None (occurrence: None)
  Receive Date: 20040818
  Receipt Date: 20040730
  Transmission Date: 20050211
  Serious: Yes (Other)
  Sender: FDA-Public Use
  Company Number: USA030946106

PATIENT
  Age: 78 Year
  Sex: Female
  Weight: 63 kg

DRUGS (3)
  1. FORTEO [Suspect]
     Indication: OSTEOPOROSIS
     Dosage: 20 UG DAY
     Dates: start: 20030729, end: 20040501
  2. AMBIEN [Concomitant]
  3. IBUPROFEN [Concomitant]

REACTIONS (6)
  - BENIGN OVARIAN TUMOUR [None]
  - FATIGUE [None]
  - HYSTERECTOMY [None]
  - PHARMACEUTICAL PRODUCT COMPLAINT [None]
  - SPINAL COLUMN STENOSIS [None]
  - UTERINE PAIN [None]
